FAERS Safety Report 7885458-8 (Version None)
Quarter: 2011Q4

REPORT INFORMATION
  Report Type: 
  Country: None (occurrence: None)
  Receive Date: 20111102
  Receipt Date: 20111024
  Transmission Date: 20120403
  Serious: Yes (Other)
  Sender: FDA-Public Use
  Company Number: US-ROCHE-1006589

PATIENT
  Sex: Female

DRUGS (4)
  1. XOLAIR [Suspect]
     Indication: ASTHMA
     Route: 058
     Dates: start: 20110721
  2. SINGULAIR [Concomitant]
  3. VENTOLIN [Concomitant]
  4. PREDNISONE [Concomitant]

REACTIONS (6)
  - HEADACHE [None]
  - DIZZINESS [None]
  - NASOPHARYNGITIS [None]
  - BODY TEMPERATURE INCREASED [None]
  - PNEUMONIA [None]
  - SINUS HEADACHE [None]
